FAERS Safety Report 7305096-5 (Version None)
Quarter: 2011Q1

REPORT INFORMATION
  Report Type: 
  Country: None (occurrence: None)
  Receive Date: 20110222
  Receipt Date: 20110209
  Transmission Date: 20110831
  Serious: Yes (Hospitalization)
  Sender: FDA-Public Use
  Company Number: US-ACTELION-A-NJ2011-44978

PATIENT

DRUGS (1)
  1. TRACLEER [Suspect]
     Indication: PULMONARY ARTERIAL HYPERTENSION
     Dosage: UNK
     Route: 048
     Dates: start: 20080101

REACTIONS (7)
  - WEIGHT DECREASED [None]
  - GINGIVAL PAIN [None]
  - PERIPHERAL COLDNESS [None]
  - EATING DISORDER [None]
  - PAIN IN JAW [None]
  - SWELLING [None]
  - ABDOMINAL DISTENSION [None]
